FAERS Safety Report 19449455 (Version 6)
Quarter: 2021Q3

REPORT INFORMATION
  Report Type: Report from Study
  Country: US (occurrence: US)
  Receive Date: 20210622
  Receipt Date: 20210930
  Transmission Date: 20211014
  Serious: Yes (Hospitalization)
  Sender: FDA-Public Use
  Company Number: US-TAIHO ONCOLOGY  INC-EU-2021-01912

PATIENT
  Age: 82 Year
  Sex: Male
  Weight: 94.43 kg

DRUGS (9)
  1. CARVEDILOL. [Concomitant]
     Active Substance: CARVEDILOL
  2. COZAAR [Concomitant]
     Active Substance: LOSARTAN POTASSIUM
  3. ATORVASTATIN [Concomitant]
     Active Substance: ATORVASTATIN
  4. LONSURF [Suspect]
     Active Substance: TIPIRACIL HYDROCHLORIDE\TRIFLURIDINE
     Indication: COLON CANCER
     Dosage: CYCLE?1
     Route: 048
     Dates: start: 20210423
  5. PREVAGEN [Concomitant]
     Active Substance: DIETARY SUPPLEMENT
  6. ELIQUIS [Concomitant]
     Active Substance: APIXABAN
  7. COREG CR [Concomitant]
     Active Substance: CARVEDILOL PHOSPHATE
  8. LIPITOR [Concomitant]
     Active Substance: ATORVASTATIN CALCIUM
  9. HYDRALAZINE [Concomitant]
     Active Substance: HYDRALAZINE HYDROCHLORIDE

REACTIONS (8)
  - Fall [Unknown]
  - Body temperature increased [Unknown]
  - Muscular weakness [Unknown]
  - Hypotension [Unknown]
  - Product dose omission issue [Unknown]
  - Kidney infection [Recovered/Resolved]
  - Sepsis [Unknown]
  - Urinary tract infection [Unknown]

NARRATIVE: CASE EVENT DATE: 202106
